FAERS Safety Report 7262391-6 (Version None)
Quarter: 2011Q1

REPORT INFORMATION
  Report Type: 
  Country: None (occurrence: None)
  Receive Date: 20110130
  Receipt Date: 20101117
  Transmission Date: 20110831
  Serious: No
  Sender: FDA-Public Use
  Company Number: US-ABBOTT-10P-163-0686045-00

PATIENT
  Age: 59 Year
  Sex: Male

DRUGS (10)
  1. CEPHALEXIN [Concomitant]
     Indication: ANTIBIOTIC THERAPY
     Route: 048
  2. INHALER [Concomitant]
     Indication: RESPIRATORY DISORDER
  3. ONE A DAY MULTIVITAMIN [Concomitant]
     Indication: PRODUCT USED FOR UNKNOWN INDICATION
  4. HUMIRA [Suspect]
     Indication: PSORIASIS
     Dates: start: 20101105
  5. FUROSEMIDE [Concomitant]
     Indication: CARDIAC DISORDER
     Route: 048
  6. GABAPENTIN [Concomitant]
     Indication: PARAESTHESIA
     Route: 048
  7. METFORMIN [Concomitant]
     Indication: DIABETES MELLITUS
     Route: 048
  8. DARVOCET-N 100 [Concomitant]
     Indication: PAIN
     Dosage: 100-650 MG AS NEEDED
  9. VITAMIN D [Concomitant]
     Indication: PRODUCT USED FOR UNKNOWN INDICATION
  10. CARVEDILOL [Concomitant]
     Indication: PRODUCT USED FOR UNKNOWN INDICATION
     Route: 048

REACTIONS (2)
  - INJECTION SITE ERYTHEMA [None]
  - INJECTION SITE PRURITUS [None]
